FAERS Safety Report 6681835-1 (Version None)
Quarter: 2010Q2

REPORT INFORMATION
  Report Type: 
  Country: None (occurrence: None)
  Receive Date: 20100414
  Receipt Date: 20100412
  Transmission Date: 20101027
  Serious: Yes (Hospitalization)
  Sender: FDA-Public Use
  Company Number: US-BAYER-201014029BCC

PATIENT
  Sex: Male
  Weight: 154 kg

DRUGS (1)
  1. ALEVE (CAPLET) [Suspect]
     Indication: SELF INJURIOUS BEHAVIOUR
     Dosage: TOTAL DAILY DOSE: 10560 MG  UNIT DOSE: 220 MG
     Route: 048
     Dates: start: 20100407

REACTIONS (2)
  - BLOOD BILIRUBIN UNCONJUGATED INCREASED [None]
  - HEPATIC FUNCTION ABNORMAL [None]
